FAERS Safety Report 10601421 (Version 6)
Quarter: 2015Q3

REPORT INFORMATION
  Report Type: Spontaneous
  Country: US (occurrence: US)
  Receive Date: 20141124
  Receipt Date: 20150806
  Transmission Date: 20151125
  Serious: Yes (Hospitalization)
  Sender: FDA-Public Use
  Company Number: US-PFIZER INC-2014320756

PATIENT
  Age: 61 Year
  Sex: Female

DRUGS (3)
  1. PREDNISONE. [Concomitant]
     Active Substance: PREDNISONE
     Dosage: UNK
  2. XELJANZ [Suspect]
     Active Substance: TOFACITINIB CITRATE
     Dosage: 5 MG TABLET 2 TABLETS MORNING AND 1 TABLET EVENING
     Route: 048
     Dates: start: 201411
  3. XELJANZ [Suspect]
     Active Substance: TOFACITINIB CITRATE
     Indication: RHEUMATOID ARTHRITIS
     Dosage: 5 MG, 2X/DAY
     Route: 048

REACTIONS (7)
  - Platelet count decreased [Unknown]
  - Pyrexia [Unknown]
  - Tooth disorder [Unknown]
  - Viral infection [Unknown]
  - Intestinal obstruction [Recovered/Resolved]
  - Nasopharyngitis [Unknown]
  - Tendon injury [Unknown]

NARRATIVE: CASE EVENT DATE: 20150504
